FAERS Safety Report 15345896 (Version 1)
Quarter: 2018Q3

REPORT INFORMATION
  Report Type: Spontaneous
  Country: CN (occurrence: CN)
  Receive Date: 20180904
  Receipt Date: 20180904
  Transmission Date: 20181010
  Serious: Yes (Death, Life-Threatening)
  Sender: FDA-Public Use
  Company Number: CN-ROCHE-2179327

PATIENT
  Age: 76 Year
  Sex: Male
  Weight: 86 kg

DRUGS (3)
  1. ACTILYSE [Suspect]
     Active Substance: ALTEPLASE
     Dosage: PUMP INJECTION
     Route: 042
     Dates: start: 20180622, end: 20180622
  2. ACTILYSE [Suspect]
     Active Substance: ALTEPLASE
     Dosage: 0.6 MG/KG, AT 0725 HOURS AND ENDED AT 0825 HOURS
     Route: 042
     Dates: start: 20180622, end: 20180622
  3. ACTILYSE [Suspect]
     Active Substance: ALTEPLASE
     Indication: THROMBOLYSIS
     Dosage: AT 0725 HOURS
     Route: 042
     Dates: start: 20180622, end: 20180622

REACTIONS (2)
  - Multiple organ dysfunction syndrome [Fatal]
  - Cerebral haemorrhage [Unknown]

NARRATIVE: CASE EVENT DATE: 20180624
